FAERS Safety Report 7745406-8 (Version None)
Quarter: 2011Q3

REPORT INFORMATION
  Report Type: 
  Country: None (occurrence: None)
  Receive Date: 20110913
  Receipt Date: 20110907
  Transmission Date: 20111222
  Serious: Yes (Hospitalization)
  Sender: FDA-Public Use
  Company Number: UA-GENZYME-CERZ-1002095

PATIENT
  Weight: 19.5 kg

DRUGS (7)
  1. CEREZYME [Suspect]
     Dosage: 600 U, UNK
     Route: 042
  2. CEREZYME [Suspect]
     Dosage: 400 U, UNK
     Route: 042
     Dates: start: 20110511, end: 20110511
  3. CEREZYME [Suspect]
     Indication: GAUCHER'S DISEASE
     Dosage: 60 U/KG, Q2W
     Route: 042
     Dates: start: 20110624
  4. CEREZYME [Suspect]
     Dosage: 800 U, UNK
     Route: 042
  5. CEREZYME [Suspect]
     Dosage: 1200 U, UNK
     Route: 042
  6. CEREZYME [Suspect]
     Dosage: 1000 U, UNK
     Route: 042
     Dates: start: 20090714, end: 20090811
  7. CEREZYME [Suspect]
     Dosage: 200 U, UNK
     Route: 042
     Dates: start: 20091211, end: 20091211

REACTIONS (2)
  - DISEASE PROGRESSION [None]
  - GAUCHER'S DISEASE [None]
